FAERS Safety Report 4410545-6 (Version None)
Quarter: 2004Q3

REPORT INFORMATION
  Report Type: 
  Country: None (occurrence: None)
  Receive Date: 20040726
  Receipt Date: 20040719
  Transmission Date: 20050211
  Serious: Yes (Hospitalization)
  Sender: FDA-Public Use
  Company Number: US-JNJFOC-20040705158

PATIENT
  Age: 67 Year
  Sex: Female

DRUGS (2)
  1. RETIN-A [Suspect]
     Indication: ACNE
     Dosage: TOPICAL
     Route: 061
     Dates: start: 20040201, end: 20040714
  2. PREVACID [Concomitant]

REACTIONS (3)
  - ANGIONEUROTIC OEDEMA [None]
  - BLOOD PRESSURE INCREASED [None]
  - DRUG HYPERSENSITIVITY [None]
